FAERS Safety Report 5115799-9 (Version None)
Quarter: 2006Q3

REPORT INFORMATION
  Report Type: 
  Country: None (occurrence: None)
  Receive Date: 20060925
  Receipt Date: 20060908
  Transmission Date: 20061208
  Serious: Yes (Hospitalization, Other)
  Sender: FDA-Public Use
  Company Number: 200609IM000519

PATIENT

DRUGS (2)
  1. ACTIMMUNE [Suspect]
     Indication: METASTASES TO BONE
     Dosage: 100 UG, QWK, SUBCUTANEOUS
     Route: 058
  2. ACTIMMUNE [Suspect]
     Indication: RENAL CELL CARCINOMA STAGE UNSPECIFIED
     Dosage: 100 UG, QWK, SUBCUTANEOUS
     Route: 058

REACTIONS (1)
  - THERAPEUTIC RESPONSE DECREASED [None]
